FAERS Safety Report 12392612 (Version 1)
Quarter: 2016Q2

REPORT INFORMATION
  Report Type: Report from Study
  Country: FR (occurrence: FR)
  Receive Date: 20160523
  Receipt Date: 20160523
  Transmission Date: 20160815
  Serious: Yes (Hospitalization)
  Sender: FDA-Public Use
  Company Number: FR-ROCHE-1761499

PATIENT
  Age: 80 Year
  Sex: Male

DRUGS (9)
  1. RITUXIMAB [Suspect]
     Active Substance: RITUXIMAB
     Dosage: M3
     Route: 041
     Dates: start: 20131010
  2. RITUXIMAB [Suspect]
     Active Substance: RITUXIMAB
     Dosage: M18
     Route: 041
     Dates: start: 20150119
  3. LASILIX [Concomitant]
     Active Substance: FUROSEMIDE
     Route: 048
     Dates: start: 20130603
  4. RITUXIMAB [Suspect]
     Active Substance: RITUXIMAB
     Indication: ANTI-NEUTROPHIL CYTOPLASMIC ANTIBODY POSITIVE VASCULITIS
     Dosage: DAY 1 (D1)
     Route: 041
     Dates: start: 20130725
  5. CORTANCYL [Concomitant]
     Active Substance: PREDNISONE
     Route: 048
     Dates: start: 20131218
  6. PREVISCAN (FRANCE) [Concomitant]
     Active Substance: FLUINDIONE
     Route: 048
     Dates: start: 201303
  7. DIFFU-K [Concomitant]
     Active Substance: POTASSIUM CHLORIDE
     Route: 048
     Dates: start: 20130319
  8. RITUXIMAB [Suspect]
     Active Substance: RITUXIMAB
     Dosage: M3
     Route: 041
     Dates: start: 20140127
  9. LYRICA [Concomitant]
     Active Substance: PREGABALIN
     Route: 048
     Dates: start: 20130603

REACTIONS (2)
  - Cholecystitis acute [Recovered/Resolved]
  - Prostatitis Escherichia coli [Recovered/Resolved]

NARRATIVE: CASE EVENT DATE: 20151010
